FAERS Safety Report 6017435-6 (Version None)
Quarter: 2008Q4

REPORT INFORMATION
  Report Type: 
  Country: None (occurrence: None)
  Receive Date: 20081223
  Receipt Date: 20080404
  Transmission Date: 20090506
  Serious: Yes (Hospitalization, Other)
  Sender: FDA-Public Use
  Company Number: PHHO2007US14627

PATIENT
  Sex: Male
  Weight: 82.6 kg

DRUGS (12)
  1. METOPROLOL [Suspect]
  2. BLINDED MYC123 MYC+SUSINF [Suspect]
     Indication: MENINGITIS CRYPTOCOCCAL
     Dosage: CODE NOT BROKEN
     Route: 042
     Dates: start: 20070420, end: 20070426
  3. BLINDED NO TREATMENT RECEIVED NOMED [Suspect]
     Indication: MENINGITIS CRYPTOCOCCAL
     Dosage: CODE NOT BROKEN
     Route: 042
     Dates: start: 20070420, end: 20070426
  4. BLINDED PLACEBO COMP-PLA+ [Suspect]
     Indication: MENINGITIS CRYPTOCOCCAL
     Dosage: CODE NOT BROKEN
     Route: 042
     Dates: start: 20070420, end: 20070426
  5. LISINOPRIL [Suspect]
  6. NIFEDIPINE [Suspect]
  7. AMPHOTERICIN B [Concomitant]
     Dates: start: 20070401
  8. FLUCYTOSINE [Concomitant]
     Dates: start: 20070401
  9. ASPIRIN [Concomitant]
  10. TERAZOSIN HCL [Concomitant]
  11. PROTONIX [Concomitant]
  12. DIFLUCAN [Concomitant]

REACTIONS (4)
  - BLOOD POTASSIUM DECREASED [None]
  - DIZZINESS POSTURAL [None]
  - DYSPHAGIA [None]
  - HYPOTENSION [None]
